FAERS Safety Report 5742080-7 (Version None)
Quarter: 2008Q2

REPORT INFORMATION
  Report Type: 
  Country: None (occurrence: None)
  Receive Date: 20080519
  Receipt Date: 20080515
  Transmission Date: 20081010
  Serious: Yes (Life-Threatening)
  Sender: FDA-Public Use
  Company Number: US-MERCK-0804USA03817

PATIENT
  Age: 8 Year
  Sex: Male
  Weight: 40 kg

DRUGS (4)
  1. SINGULAIR [Suspect]
     Indication: ASTHMA
     Route: 048
     Dates: start: 20000906, end: 20080416
  2. PREDNISONE [Concomitant]
     Route: 048
  3. XOLAIR [Concomitant]
     Route: 065
     Dates: start: 20070101
  4. ADVAIR DISKUS 100/50 [Concomitant]
     Route: 065

REACTIONS (2)
  - AGGRESSION [None]
  - SUICIDAL BEHAVIOUR [None]
